FAERS Safety Report 7151281-5 (Version None)
Quarter: 2010Q4

REPORT INFORMATION
  Report Type: 
  Country: None (occurrence: None)
  Receive Date: 20101210
  Receipt Date: 20101124
  Transmission Date: 20110411
  Serious: Yes (Other)
  Sender: FDA-Public Use
  Company Number: NL-BAYER-200912374GPV

PATIENT
  Sex: Male

DRUGS (7)
  1. NEXAVAR [Suspect]
     Indication: HEPATIC CANCER METASTATIC
     Route: 048
     Dates: start: 20081007, end: 20090129
  2. NEXAVAR [Suspect]
     Route: 048
     Dates: start: 20090129, end: 20090206
  3. NEXAVAR [Suspect]
     Route: 048
     Dates: start: 20090201
  4. NEXAVAR [Suspect]
     Route: 048
     Dates: end: 20100101
  5. ENALAPRIL [Concomitant]
     Route: 065
     Dates: end: 20081029
  6. ENALAPRIL [Concomitant]
     Dosage: 20 MG, BID
     Route: 048
     Dates: start: 20081030
  7. NEXAVAR [Suspect]
     Dosage: UNK
     Route: 048

REACTIONS (8)
  - ADRENAL DISORDER [None]
  - ADRENAL NEOPLASM [None]
  - BLOOD PRESSURE INCREASED [None]
  - DIARRHOEA [None]
  - FATIGUE [None]
  - LETHARGY [None]
  - RASH [None]
  - SLUGGISHNESS [None]
